FAERS Safety Report 5484178-7 (Version None)
Quarter: 2007Q4

REPORT INFORMATION
  Report Type: 
  Country: None (occurrence: None)
  Receive Date: 20071012
  Receipt Date: 20071009
  Transmission Date: 20080405
  Serious: Yes (Hospitalization)
  Sender: FDA-Public Use
  Company Number: NO-GENENTECH-249223

PATIENT
  Sex: Female
  Weight: 62 kg

DRUGS (12)
  1. FLUOROURACIL [Suspect]
     Indication: BREAST CANCER METASTATIC
     Dosage: 1005 MG, Q3W
     Dates: start: 20070323
  2. BLINDED BEVACIZUMAB [Suspect]
     Indication: BREAST CANCER METASTATIC
     Dosage: 1005 MG, Q3W
     Dates: start: 20070323
  3. BLINDED CAPECITABINE [Suspect]
     Indication: BREAST CANCER METASTATIC
     Dosage: 1005 MG, Q3W
     Dates: start: 20070323
  4. CYCLOPHOSPHAMIDE [Suspect]
     Indication: BREAST CANCER METASTATIC
     Dosage: 1005 MG, Q3W
     Dates: start: 20070323
  5. BLINDED DOCETAXEL [Suspect]
     Indication: BREAST CANCER METASTATIC
     Dosage: 1005 MG, Q3W
     Dates: start: 20070323
  6. DOXORUBICIN HCL [Suspect]
     Indication: BREAST CANCER METASTATIC
     Dosage: 1005 MG, Q3W
     Dates: start: 20070323
  7. EPIRUBICIN [Suspect]
     Indication: BREAST CANCER METASTATIC
     Dosage: 1005 MG, Q3W
     Dates: start: 20070323
  8. BLINDED NO STUDY DRUG ADMINISTERED [Suspect]
     Indication: BREAST CANCER METASTATIC
     Dosage: 1005 MG, Q3W
     Dates: start: 20070323
  9. BLINDED PACLITAXEL [Suspect]
     Indication: BREAST CANCER METASTATIC
     Dosage: 1005 MG, Q3W
     Dates: start: 20070323
  10. BLINDED PLACEBO [Suspect]
     Indication: BREAST CANCER METASTATIC
     Dosage: 1005 MG, Q3W
     Dates: start: 20070323
  11. EPIRUBICIN [Suspect]
     Indication: BREAST CANCER METASTATIC
     Dosage: 160 MG, UNK
     Dates: start: 20070323
  12. CYCLOPHOSPHAMIDE [Suspect]
     Indication: BREAST CANCER METASTATIC
     Dosage: 1070 MG, UNK
     Dates: start: 20070323

REACTIONS (1)
  - LEFT VENTRICULAR DYSFUNCTION [None]
